FAERS Safety Report 4483032-7 (Version None)
Quarter: 2004Q3

REPORT INFORMATION
  Report Type: 
  Country: None (occurrence: None)
  Receive Date: 20040921
  Receipt Date: 20040511
  Transmission Date: 20050211
  Serious: Yes (Hospitalization)
  Sender: FDA-Public Use
  Company Number: 163-20785-04050235 (0)

PATIENT
  Age: 69 Year
  Sex: Male

DRUGS (2)
  1. THALOMID [Suspect]
     Indication: MULTIPLE MYELOMA
     Dosage: SEE IMAGE
     Route: 048
     Dates: start: 20040113
  2. THALOMID [Suspect]
     Indication: MULTIPLE MYELOMA
     Dosage: SEE IMAGE
     Route: 048
     Dates: start: 20040407

REACTIONS (4)
  - BRAIN NEOPLASM MALIGNANT [None]
  - DISEASE PROGRESSION [None]
  - FULL BLOOD COUNT DECREASED [None]
  - LOSS OF CONSCIOUSNESS [None]
